FAERS Safety Report 9281261 (Version 1)
Quarter: 2013Q2

REPORT INFORMATION
  Report Type: Spontaneous
  Country: IT (occurrence: IT)
  Receive Date: 20130509
  Receipt Date: 20130509
  Transmission Date: 20140414
  Serious: Yes (Hospitalization)
  Sender: FDA-Public Use
  Company Number: IT-JNJFOC-20130502135

PATIENT
  Age: 92 Year
  Sex: Female

DRUGS (1)
  1. PATROL [Suspect]
     Indication: BACK PAIN
     Route: 048
     Dates: start: 20121128, end: 20121128

REACTIONS (3)
  - Vomiting [Not Recovered/Not Resolved]
  - Malaise [Not Recovered/Not Resolved]
  - Hyperhidrosis [Not Recovered/Not Resolved]
